FAERS Safety Report 7416627-9 (Version None)
Quarter: 2011Q2

REPORT INFORMATION
  Report Type: 
  Country: None (occurrence: None)
  Receive Date: 20110415
  Receipt Date: 20110405
  Transmission Date: 20111010
  Serious: No
  Sender: FDA-Public Use
  Company Number: US-BIOGENIDEC-2010BI018645

PATIENT
  Sex: Female

DRUGS (1)
  1. TYSABRI [Suspect]
     Indication: MULTIPLE SCLEROSIS
     Route: 042
     Dates: start: 20100528

REACTIONS (7)
  - ASTHENIA [None]
  - CONTUSION [None]
  - FALL [None]
  - PERSONALITY CHANGE [None]
  - FATIGUE [None]
  - INJURY [None]
  - ARTHRALGIA [None]
